FAERS Safety Report 7078252-1 (Version None)
Quarter: 2010Q4

REPORT INFORMATION
  Report Type: 
  Country: None (occurrence: None)
  Receive Date: 20101102
  Receipt Date: 20101026
  Transmission Date: 20110411
  Serious: Yes (Hospitalization)
  Sender: FDA-Public Use
  Company Number: US-JNJFOC-20100905660

PATIENT
  Sex: Male
  Weight: 97.07 kg

DRUGS (3)
  1. INVEGA SUSTENNA [Suspect]
     Indication: SCHIZOPHRENIA
     Route: 030
  2. HALDOL [Concomitant]
     Indication: SCHIZOPHRENIA
  3. GEODON [Concomitant]
     Indication: SCHIZOPHRENIA

REACTIONS (5)
  - BACK PAIN [None]
  - DYSARTHRIA [None]
  - HYPOKALAEMIA [None]
  - MUSCULOSKELETAL STIFFNESS [None]
  - PERICARDITIS [None]
